FAERS Safety Report 7897048-1 (Version None)
Quarter: 2011Q4

REPORT INFORMATION
  Report Type: 
  Country: None (occurrence: None)
  Receive Date: 20111107
  Receipt Date: 20111027
  Transmission Date: 20120403
  Serious: Yes (Other)
  Sender: FDA-Public Use
  Company Number: CA-JNJFOC-20110703180

PATIENT
  Sex: Male
  Weight: 94.8 kg

DRUGS (2)
  1. PULMICORT [Concomitant]
     Indication: ASTHMA
     Route: 055
  2. REMICADE [Suspect]
     Indication: CROHN'S DISEASE
     Route: 042
     Dates: start: 20100823

REACTIONS (3)
  - CROHN'S DISEASE [None]
  - DIABETES MELLITUS [None]
  - RECTAL ABSCESS [None]
